FAERS Safety Report 8953420 (Version 2)
Quarter: 2012Q4

REPORT INFORMATION
  Report Type: 
  Country: IE (occurrence: IE)
  Receive Date: 20121206
  Receipt Date: 20121226
  Transmission Date: 20130627
  Serious: Yes (Other)
  Sender: FDA-Public Use
  Company Number: IE-JNJFOC-20121105513

PATIENT
  Sex: Male

DRUGS (2)
  1. CONCERTA XL [Suspect]
     Indication: ATTENTION DEFICIT/HYPERACTIVITY DISORDER
     Route: 048
     Dates: start: 20121102, end: 20121103
  2. LEXAPRO [Concomitant]
     Indication: GENERALISED ANXIETY DISORDER
     Route: 048

REACTIONS (1)
  - Product contamination physical [Not Recovered/Not Resolved]
